FAERS Safety Report 4372073-6 (Version None)
Quarter: 2004Q2

REPORT INFORMATION
  Report Type: 
  Country: None (occurrence: None)
  Receive Date: 20040603
  Receipt Date: 20040603
  Transmission Date: 20050107
  Serious: Yes (Other)
  Sender: FDA-Public Use
  Company Number: None

PATIENT
  Age: 9 Year
  Sex: Male
  Weight: 52.6173 kg

DRUGS (3)
  1. WELLBUTRIN [Suspect]
     Indication: ANXIETY
     Dosage: 37.5 MG 2 DAILY ORAL
     Route: 048
     Dates: start: 20040528, end: 20040602
  2. WELLBUTRIN [Suspect]
     Indication: DEPRESSION
     Dosage: 37.5 MG 2 DAILY ORAL
     Route: 048
     Dates: start: 20040528, end: 20040602
  3. TRAZODONE HCL [Concomitant]

REACTIONS (8)
  - ABNORMAL BEHAVIOUR [None]
  - AGGRESSION [None]
  - COMMUNICATION DISORDER [None]
  - CONFUSIONAL STATE [None]
  - CRYING [None]
  - MOOD SWINGS [None]
  - SCREAMING [None]
  - SOCIAL AVOIDANT BEHAVIOUR [None]
